FAERS Safety Report 6036046-X (Version None)
Quarter: 2009Q1

REPORT INFORMATION
  Report Type: 
  Country: None (occurrence: None)
  Receive Date: 20090113
  Receipt Date: 20090108
  Transmission Date: 20090719
  Serious: Yes (Hospitalization)
  Sender: FDA-Public Use
  Company Number: US-BRISTOL-MYERS SQUIBB COMPANY-14399661

PATIENT
  Age: 35 Year
  Sex: Female

DRUGS (8)
  1. IXEMPRA KIT [Suspect]
     Indication: BREAST CANCER METASTATIC
     Dosage: STARTED 1ST INFUSION ON 26-JUL-08 WITH 40MG; 2ND INF-45MG; 3RD INF-32MG
     Route: 042
     Dates: start: 20080626
  2. CARBOPLATIN [Suspect]
     Dates: start: 20080501
  3. NAVELBINE [Suspect]
     Dosage: 10 CYCLES COMPLETED
     Dates: end: 20080427
  4. AVASTIN [Suspect]
     Dosage: 10 CYCLES COMPLETED
     Dates: end: 20080427
  5. ZOLPIDEM [Concomitant]
  6. PRILOSEC [Concomitant]
  7. OXYCODONE HCL [Concomitant]
  8. ALBUTEROL [Concomitant]
     Route: 055

REACTIONS (6)
  - BLOOD BILIRUBIN INCREASED [None]
  - HEPATIC ENZYME INCREASED [None]
  - HEPATITIS [None]
  - HEPATOTOXICITY [None]
  - NAUSEA [None]
  - VOMITING [None]
